FAERS Safety Report 9555762 (Version 1)
Quarter: 2013Q3

REPORT INFORMATION
  Report Type: Spontaneous
  Country: NO (occurrence: NO)
  Receive Date: 20130926
  Receipt Date: 20130926
  Transmission Date: 20140515
  Serious: Yes (Other)
  Sender: FDA-Public Use
  Company Number: NO-JNJFOC-20130910425

PATIENT
  Age: 64 Year
  Sex: Female

DRUGS (12)
  1. REMICADE [Suspect]
     Indication: RHEUMATOID ARTHRITIS
     Route: 042
     Dates: start: 20130309
  2. REMICADE [Suspect]
     Indication: RHEUMATOID ARTHRITIS
     Route: 042
     Dates: start: 20130330, end: 20130903
  3. REMICADE [Suspect]
     Indication: RHEUMATOID ARTHRITIS
     Route: 042
     Dates: start: 20110726, end: 20120611
  4. REMICADE [Suspect]
     Indication: RHEUMATOID ARTHRITIS
     Route: 042
     Dates: start: 20100428, end: 20101209
  5. SOLU-CORTEF [Concomitant]
     Indication: PROPHYLAXIS
     Route: 065
     Dates: start: 20130903, end: 20130903
  6. CETIRIZINE [Concomitant]
     Indication: PROPHYLAXIS
     Dosage: AGAINST INFUSION RELATED REACTION
     Route: 048
     Dates: start: 20130903, end: 20130903
  7. METHOTREXATE [Concomitant]
     Indication: RHEUMATOID ARTHRITIS
     Route: 048
  8. FOLSYRE NAF [Concomitant]
     Indication: RHEUMATOID ARTHRITIS
     Route: 048
  9. PREDNISOLON [Concomitant]
     Indication: RHEUMATOID ARTHRITIS
     Route: 048
  10. PARACETAMOL [Concomitant]
     Indication: PROPHYLAXIS
     Route: 048
     Dates: start: 20130903, end: 20130903
  11. ALBYL-E [Concomitant]
     Route: 048
  12. COAPROVEL [Concomitant]
     Indication: HYPERTENSION
     Dosage: 150/12,5 MG
     Route: 048

REACTIONS (4)
  - Malaise [Recovered/Resolved]
  - Syncope [Recovered/Resolved]
  - Infusion related reaction [Recovered/Resolved]
  - Oxygen saturation decreased [Recovered/Resolved]
